FAERS Safety Report 12155238 (Version 1)
Quarter: 2016Q1

REPORT INFORMATION
  Report Type: Spontaneous
  Country: CA (occurrence: CA)
  Receive Date: 20160307
  Receipt Date: 20160307
  Transmission Date: 20160526
  Serious: Yes (Other)
  Sender: FDA-Public Use
  Company Number: CA-SUNOVION-2016SUN000511

PATIENT
  Age: 9 Year
  Sex: Male

DRUGS (1)
  1. OMNARIS [Suspect]
     Active Substance: CICLESONIDE
     Indication: HYPERSENSITIVITY
     Dosage: UNK
     Route: 045

REACTIONS (2)
  - Vomiting [Unknown]
  - Nausea [Unknown]
